FAERS Safety Report 13460901 (Version 2)
Quarter: 2022Q4

REPORT INFORMATION
  Report Type: Report from Study
  Country: BE (occurrence: None)
  Receive Date: 20170420
  Receipt Date: 20221205
  Transmission Date: 20230113
  Serious: Yes (Hospitalization)
  Sender: FDA-Public Use
  Company Number: BE-ROCHE-1220316

PATIENT
  Age: 42 Year
  Sex: Female
  Weight: 85.8 kg

DRUGS (80)
  1. OCRELIZUMAB [Suspect]
     Active Substance: OCRELIZUMAB
     Indication: Relapsing-remitting multiple sclerosis
     Dosage: LAST DOSE PRIOR TO SAE : 25/APR/2013. CYCLE 1 PATIENT RECEIVED A DUAL INFUSION OF OCRELIZUMAB SEPARA
     Route: 042
     Dates: start: 20121105
  2. PLACEBO [Suspect]
     Active Substance: UNSPECIFIED INGREDIENT
     Indication: Relapsing-remitting multiple sclerosis
     Dosage: LAST DOSE PRIOR TO SAE: 24/APR/2013.
     Route: 058
     Dates: start: 20121105
  3. PLACEBO [Suspect]
     Active Substance: UNSPECIFIED INGREDIENT
     Route: 058
     Dates: start: 2003, end: 20121104
  4. CETIRIZINE [Concomitant]
     Active Substance: CETIRIZINE HYDROCHLORIDE
     Indication: Premedication
     Dates: start: 20121105
  5. ACETAMINOPHEN [Concomitant]
     Active Substance: ACETAMINOPHEN
     Indication: Premedication
     Dates: start: 20121105
  6. METHYLPREDNISOLONE [Concomitant]
     Active Substance: METHYLPREDNISOLONE
     Indication: Premedication
     Dates: start: 20121105
  7. METHYLPREDNISOLONE [Concomitant]
     Active Substance: METHYLPREDNISOLONE
     Dates: start: 201201, end: 201201
  8. OXYBUTYNIN [Concomitant]
     Active Substance: OXYBUTYNIN
     Dates: start: 2007
  9. HYGROTON [Concomitant]
     Active Substance: CHLORTHALIDONE
     Dates: start: 201202, end: 201212
  10. BEFACT FORTE [Concomitant]
     Dosage: B2: 10 MG, B1 250 MG, B6 250 MG AND B12 0.02 MG
     Dates: start: 2008
  11. DAFALGAN [Concomitant]
     Active Substance: ACETAMINOPHEN
     Dates: start: 20121110, end: 20121112
  12. ZOVIRAX [Concomitant]
     Active Substance: ACYCLOVIR
     Dates: start: 20130101, end: 20130110
  13. ZOVIRAX [Concomitant]
     Active Substance: ACYCLOVIR
     Dates: start: 20130325
  14. CLARITHROMYCIN [Concomitant]
     Active Substance: CLARITHROMYCIN
     Dates: start: 20130225, end: 201303
  15. NITROFURANTOIN [Concomitant]
     Active Substance: NITROFURANTOIN
     Dates: start: 20130319, end: 201303
  16. FLUCONAZOLE [Concomitant]
     Active Substance: FLUCONAZOLE
     Dates: start: 201305, end: 201305
  17. IBUPROFEN [Concomitant]
     Active Substance: IBUPROFEN
     Dates: start: 201411, end: 20141203
  18. MERCILON [Concomitant]
     Active Substance: DESOGESTREL\ETHINYL ESTRADIOL
     Dates: start: 201209
  19. REBIF [Concomitant]
     Active Substance: INTERFERON BETA-1A
     Dates: start: 2003, end: 20121104
  20. CIPROFLOXACIN [Concomitant]
     Active Substance: CIPROFLOXACIN
     Dates: start: 20130503, end: 20220509
  21. PANOTILE [Concomitant]
     Dates: start: 20191203, end: 20191217
  22. MOMETASONE [Concomitant]
     Active Substance: MOMETASONE
     Dates: start: 20200108, end: 20200205
  23. CLINDAMYCIN [Concomitant]
     Active Substance: CLINDAMYCIN
     Dates: start: 20200131, end: 20200204
  24. LYSOTOSSIL [Concomitant]
  25. CLINDAMYCIN [Concomitant]
     Active Substance: CLINDAMYCIN
  26. FRAMYCETIN SULFATE\NAPHAZOLINE NITRATE\PREDNISOLONE ACETATE [Concomitant]
     Active Substance: FRAMYCETIN SULFATE\NAPHAZOLINE NITRATE\PREDNISOLONE ACETATE
  27. INFLUENZA VIRUS VACCINE [Concomitant]
     Active Substance: INFLUENZA VIRUS VACCINE
  28. NITROFURANTOIN [Concomitant]
     Active Substance: NITROFURANTOIN
  29. ALIZAPRIDE HYDROCHLORIDE [Concomitant]
     Active Substance: ALIZAPRIDE HYDROCHLORIDE
  30. TRAMADOL HYDROCHLORIDE [Concomitant]
     Active Substance: TRAMADOL HYDROCHLORIDE
  31. POTASSIUM CHLORIDE [Concomitant]
     Active Substance: POTASSIUM CHLORIDE
  32. ACETAMINOPHEN [Concomitant]
     Active Substance: ACETAMINOPHEN
  33. LEVOFLOXACIN [Concomitant]
     Active Substance: LEVOFLOXACIN
  34. ORNIDAZOLE [Concomitant]
     Active Substance: ORNIDAZOLE
  35. PANTOPRAZOLE SODIUM [Concomitant]
     Active Substance: PANTOPRAZOLE SODIUM
  36. FLAMIGEL [Concomitant]
  37. NYSTATINE LABAZ [Concomitant]
  38. VALIUM [Concomitant]
     Active Substance: DIAZEPAM
  39. ELECTROLYTES NOS [Concomitant]
     Active Substance: ELECTROLYTES NOS
  40. PROPOFOL [Concomitant]
     Active Substance: PROPOFOL
  41. ROCURONIUM [Concomitant]
     Active Substance: ROCURONIUM BROMIDE
  42. SUFENTA [Concomitant]
     Active Substance: SUFENTANIL CITRATE
     Indication: Intervertebral disc protrusion
     Dates: start: 20170801, end: 20170801
  43. KETOROLAC TROMETHAMINE [Concomitant]
     Active Substance: KETOROLAC TROMETHAMINE
     Indication: Intervertebral disc protrusion
     Dates: start: 20170801, end: 20170801
  44. ACETAMINOPHEN [Concomitant]
     Active Substance: ACETAMINOPHEN
     Indication: Intervertebral disc protrusion
     Dates: start: 20170525, end: 20170529
  45. TRAMADOL [Concomitant]
     Active Substance: TRAMADOL
     Indication: Intervertebral disc protrusion
     Dates: start: 20170528, end: 20170801
  46. LIDOCAINE [Concomitant]
     Active Substance: LIDOCAINE
     Indication: Intervertebral disc protrusion
  47. METHYLPREDNISOLONE [Concomitant]
     Active Substance: METHYLPREDNISOLONE
     Indication: Intervertebral disc protrusion
  48. ACYCLOVIR [Concomitant]
     Active Substance: ACYCLOVIR
     Indication: Oral herpes
     Dates: start: 20200227, end: 202003
  49. ACETYLCYSTEINE [Concomitant]
     Active Substance: ACETYLCYSTEINE
     Indication: Nasopharyngitis
  50. XYLOMETAZOLINE HYDROCHLORIDE [Concomitant]
     Active Substance: XYLOMETAZOLINE HYDROCHLORIDE
     Indication: Nasopharyngitis
     Dates: start: 20161207, end: 20161218
  51. STREPSILS (BELGIUM) [Concomitant]
  52. ATROVENT [Concomitant]
     Active Substance: IPRATROPIUM BROMIDE
     Indication: Nasopharyngitis
     Dates: start: 20190925, end: 20190928
  53. DEXA-RHINOSPRAY [Concomitant]
     Indication: Nasopharyngitis
     Dates: start: 20190925, end: 20190928
  54. MOXIFLOXACIN [Concomitant]
     Active Substance: MOXIFLOXACIN
     Indication: Cough
     Dates: start: 20160330, end: 20160408
  55. FUCICORT LIPID [Concomitant]
     Indication: Eczema
     Dates: start: 202201, end: 202202
  56. FRAMYCETIN SULFATE\NAPHAZOLINE NITRATE\PREDNISOLONE ACETATE [Concomitant]
     Active Substance: FRAMYCETIN SULFATE\NAPHAZOLINE NITRATE\PREDNISOLONE ACETATE
  57. MOMETASONE [Concomitant]
     Active Substance: MOMETASONE
     Indication: Deafness
  58. ZOVIRAX [Concomitant]
     Active Substance: ACYCLOVIR
     Indication: Oral herpes
     Dosage: 01/JAN/2013, 10/JAN/2013
     Dates: start: 201812, end: 201812
  59. HYGROTON [Concomitant]
     Active Substance: CHLORTHALIDONE
     Indication: Hypertension
     Dosage: /FEB/2014, /DEC/2012
     Dates: start: 201407, end: 20160228
  60. LISINOPRIL [Concomitant]
     Active Substance: LISINOPRIL
     Indication: Hypertension
     Dates: start: 20160229
  61. CHOLECALCIFEROL [Concomitant]
     Active Substance: CHOLECALCIFEROL
     Indication: Vitamin D deficiency
     Dates: start: 20170120, end: 20170124
  62. LORMETAZEPAM [Concomitant]
     Active Substance: LORMETAZEPAM
     Indication: Insomnia
  63. RIVOTRIL [Concomitant]
     Active Substance: CLONAZEPAM
     Indication: Muscle spasms
     Dates: start: 20220722
  64. SOLU-MEDROL [Concomitant]
     Active Substance: METHYLPREDNISOLONE SODIUM SUCCINATE
     Dates: start: 20220124, end: 20220128
  65. TRAMADOL [Concomitant]
     Active Substance: TRAMADOL
  66. MOVICOL [Concomitant]
     Active Substance: POLYETHYLENE GLYCOL 3350\POTASSIUM CHLORIDE\SODIUM BICARBONATE\SODIUM CHLORIDE
     Indication: Constipation
     Dates: start: 20151202
  67. MERCILON [Concomitant]
     Active Substance: DESOGESTREL\ETHINYL ESTRADIOL
     Indication: Oral contraception
     Dates: start: 201209, end: 2017
  68. CLARITHROMYCIN [Concomitant]
     Active Substance: CLARITHROMYCIN
     Indication: Ear infection
     Dates: start: 20130225, end: 201303
  69. AZITHROMYCIN [Concomitant]
     Active Substance: AZITHROMYCIN
     Indication: Ear infection
     Dates: start: 20181226, end: 20181226
  70. PANTOPRAZOLE [Concomitant]
     Active Substance: PANTOPRAZOLE
     Dates: start: 20220124, end: 20220128
  71. ZANTAC [Concomitant]
     Active Substance: RANITIDINE HYDROCHLORIDE
     Dates: start: 20170523, end: 20170529
  72. NADROPARIN CALCIUM [Concomitant]
     Active Substance: NADROPARIN CALCIUM
  73. FOSFOMYCIN TROMETHAMINE [Concomitant]
     Active Substance: FOSFOMYCIN TROMETHAMINE
  74. FLUCONAZOLE [Concomitant]
     Active Substance: FLUCONAZOLE
  75. NITROFURANTOIN [Concomitant]
     Active Substance: NITROFURANTOIN
  76. ATROVENT [Concomitant]
     Active Substance: IPRATROPIUM BROMIDE
     Indication: Sinusitis
  77. FRAMYCETIN SULFATE\NAPHAZOLINE NITRATE\PREDNISOLONE ACETATE [Concomitant]
     Active Substance: FRAMYCETIN SULFATE\NAPHAZOLINE NITRATE\PREDNISOLONE ACETATE
     Dates: start: 20190411, end: 20190415
  78. GYNO DAKTARIN [Concomitant]
     Indication: Vulvovaginal mycotic infection
  79. MICONAZOLE NITRATE [Concomitant]
     Active Substance: MICONAZOLE NITRATE
     Indication: Vaginal infection
     Dates: start: 201305, end: 201306
  80. FLUCONAZOLE [Concomitant]
     Active Substance: FLUCONAZOLE
     Indication: Vaginal infection

REACTIONS (1)
  - Pyelonephritis [Recovered/Resolved]

NARRATIVE: CASE EVENT DATE: 20130429
